FAERS Safety Report 10072355 (Version 1)
Quarter: 2014Q2

REPORT INFORMATION
  Report Type: Spontaneous
  Country: US (occurrence: US)
  Receive Date: 20140411
  Receipt Date: 20140411
  Transmission Date: 20141212
  Serious: No
  Sender: FDA-Public Use
  Company Number: US-ROXANE LABORATORIES, INC.-2014-RO-00588RO

PATIENT
  Age: 86 Year
  Sex: Female

DRUGS (3)
  1. MEGESTROL ACETATE [Suspect]
     Indication: DECREASED APPETITE
     Route: 048
     Dates: start: 20140407
  2. THYROID MEDICATION [Concomitant]
     Indication: THYROID DISORDER
     Route: 065
  3. HEART PILL [Concomitant]
     Indication: HEART RATE IRREGULAR
     Route: 065

REACTIONS (1)
  - Faeces discoloured [Not Recovered/Not Resolved]
